FAERS Safety Report 5325471-8 (Version None)
Quarter: 2007Q2

REPORT INFORMATION
  Report Type: 
  Country: None (occurrence: None)
  Receive Date: 20070515
  Receipt Date: 20070312
  Transmission Date: 20071010
  Serious: Yes (Other)
  Sender: FDA-Public Use
  Company Number: US-SHR-US-2007-008924

PATIENT
  Age: 35 Year
  Sex: Female
  Weight: 90.7 kg

DRUGS (3)
  1. MIRENA [Suspect]
     Indication: CONTRACEPTION
     Dosage: 20 A?G/DAY, CONT
     Route: 015
     Dates: start: 20041001
  2. CYMBALTA [Concomitant]
     Indication: DEPRESSION
     Dosage: 60 MG, 1X/DAY
     Route: 048
     Dates: start: 19960901
  3. PROVIGIL [Concomitant]
     Indication: NARCOLEPSY
     Dosage: 200 MG, 2X/DAY
     Route: 048
     Dates: start: 19960101

REACTIONS (1)
  - PLATELET COUNT DECREASED [None]
